FAERS Safety Report 23658683 (Version 1)
Quarter: 2024Q1

REPORT INFORMATION
  Report Type: Spontaneous
  Country: US (occurrence: None)
  Receive Date: 20240320
  Receipt Date: 20240320
  Transmission Date: 20240410
  Serious: Yes (Death)
  Sender: FDA-Public Use
  Company Number: None

PATIENT
  Sex: Female

DRUGS (3)
  1. DEVICE [Suspect]
     Active Substance: DEVICE
  2. CHLORHEXIDINE GLUCONATE [Suspect]
     Active Substance: CHLORHEXIDINE GLUCONATE
  3. DEVICE [Suspect]
     Active Substance: DEVICE

REACTIONS (1)
  - Anaphylactic reaction [None]
